FAERS Safety Report 4689145-9 (Version None)
Quarter: 2005Q2

REPORT INFORMATION
  Report Type: 
  Country: None (occurrence: None)
  Receive Date: 20050613
  Receipt Date: 20050511
  Transmission Date: 20051028
  Serious: Yes (Hospitalization)
  Sender: FDA-Public Use
  Company Number: 2005CG00906

PATIENT
  Age: 599 Month
  Sex: Male
  Weight: 97 kg

DRUGS (8)
  1. CRESTOR [Suspect]
     Route: 048
     Dates: start: 20040318, end: 20050101
  2. CRESTOR [Suspect]
     Route: 048
     Dates: start: 20050101, end: 20050301
  3. CRESTOR [Suspect]
     Route: 048
     Dates: start: 20050301
  4. MODAMIDE [Concomitant]
     Route: 048
     Dates: start: 20040318
  5. COVERSYL [Concomitant]
     Route: 048
  6. EUPRESSYL [Concomitant]
     Route: 048
  7. LOXEN LP [Concomitant]
     Route: 048
  8. DEROXAT [Concomitant]
     Route: 048

REACTIONS (2)
  - BLOOD CREATINE PHOSPHOKINASE INCREASED [None]
  - TENDON RUPTURE [None]
